FAERS Safety Report 10135063 (Version 2)
Quarter: 2015Q1

REPORT INFORMATION
  Report Type: Other
  Country: US (occurrence: US)
  Receive Date: 20140428
  Receipt Date: 20150225
  Transmission Date: 20150720
  Serious: Yes (Hospitalization, Other)
  Sender: FDA-Public Use
  Company Number: US-GSKPPD-2014GSK036969

PATIENT
  Age: 55 Year
  Sex: Male

DRUGS (6)
  1. COUMADIN [Concomitant]
     Active Substance: WARFARIN SODIUM
  2. CARDIZEM CD [Concomitant]
     Active Substance: DILTIAZEM HYDROCHLORIDE
  3. LANOXIN [Concomitant]
     Active Substance: DIGOXIN
  4. DIOVAN [Concomitant]
     Active Substance: VALSARTAN
  5. CAPTOPRIL. [Concomitant]
     Active Substance: CAPTOPRIL
  6. AVANDIA [Suspect]
     Active Substance: ROSIGLITAZONE MALEATE
     Indication: DIABETES MELLITUS
     Dosage: DATES OF AVANDIA USE COULD NOT BE CONFIRMED IN RECORDS REVIEWED.
     Route: 048

REACTIONS (2)
  - Myocardial infarction [Unknown]
  - Chest pain [Recovered/Resolved]

NARRATIVE: CASE EVENT DATE: 20020918
